FAERS Safety Report 7014532-3 (Version None)
Quarter: 2010Q3

REPORT INFORMATION
  Report Type: 
  Country: None (occurrence: None)
  Receive Date: 20100819
  Receipt Date: 20100803
  Transmission Date: 20110219
  Serious: Yes (Other)
  Sender: FDA-Public Use
  Company Number: PHHY2010MX51084

PATIENT
  Age: 76 Year
  Sex: Female

DRUGS (4)
  1. DIOVAN HCT [Suspect]
     Indication: HYPERTENSION
     Dosage: ONE TABLET (160/12.5 MG) DAILY
     Route: 048
     Dates: start: 20090401
  2. METICORTEN [Concomitant]
  3. BI-EUGLUCON [Concomitant]
  4. ALPRAZOLAM [Concomitant]

REACTIONS (4)
  - FACIAL HEMIATROPHY [None]
  - OEDEMA PERIPHERAL [None]
  - PARAESTHESIA [None]
  - PRURITUS [None]
